FAERS Safety Report 24173521 (Version 1)
Quarter: 2024Q3

REPORT INFORMATION
  Report Type: Spontaneous
  Country: US (occurrence: US)
  Receive Date: 20240805
  Receipt Date: 20240805
  Transmission Date: 20241017
  Serious: Yes (Hospitalization, Other)
  Sender: GLENMARK
  Company Number: US-MLMSERVICE-20240718-PI133351-00306-2

PATIENT

DRUGS (9)
  1. TACROLIMUS [Suspect]
     Active Substance: TACROLIMUS
     Indication: Immunosuppressant drug therapy
     Dosage: 2 MILLIGRAM, QD
     Route: 065
  2. TACROLIMUS [Suspect]
     Active Substance: TACROLIMUS
     Dosage: 1 MILLIGRAM
     Route: 065
  3. TACROLIMUS [Suspect]
     Active Substance: TACROLIMUS
     Dosage: 1 MILLIGRAM (BY THE END OF THE SIXTH DAY)
     Route: 065
  4. CETIRIZINE [Concomitant]
     Active Substance: CETIRIZINE HYDROCHLORIDE
     Indication: Vomiting
     Dosage: 10 MILLIGRAM, QD
     Route: 048
  5. CETIRIZINE [Concomitant]
     Active Substance: CETIRIZINE HYDROCHLORIDE
     Indication: Nausea
  6. ONDANSETRON [Concomitant]
     Active Substance: ONDANSETRON
     Indication: Vomiting
     Dosage: 4 MILLIGRAM (AS NEEDED)
     Route: 048
  7. ONDANSETRON [Concomitant]
     Active Substance: ONDANSETRON
     Indication: Nausea
  8. RIZATRIPTAN [Concomitant]
     Active Substance: RIZATRIPTAN
     Indication: Headache
     Dosage: 10 MILLIGRAM (AS NEEDED)
     Route: 065
  9. CLINDAMYCIN [Concomitant]
     Active Substance: CLINDAMYCIN
     Indication: Injection site phlebitis
     Dosage: (ON THE EIGHTH DAY)
     Route: 048

REACTIONS (6)
  - Immunosuppressant drug level increased [Unknown]
  - Epstein-Barr virus associated lymphoproliferative disorder [Recovered/Resolved]
  - Ascites [Unknown]
  - Pericardial effusion [Unknown]
  - Pleural effusion [Unknown]
  - Acute kidney injury [Unknown]
